FAERS Safety Report 9354041 (Version 1)
Quarter: 2013Q2

REPORT INFORMATION
  Report Type: Spontaneous
  Country: NL (occurrence: NL)
  Receive Date: 20130618
  Receipt Date: 20130618
  Transmission Date: 20140414
  Serious: Yes (Hospitalization)
  Sender: FDA-Public Use
  Company Number: NL-ASTRAZENECA-2013SE41817

PATIENT
  Age: 65 Year
  Sex: Female
  Weight: 80 kg

DRUGS (7)
  1. MIRTAZAPINE [Concomitant]
     Route: 048
     Dates: start: 2006
  2. TEMAZEPAM [Concomitant]
     Route: 048
     Dates: start: 2006
  3. MOVICOLON [Concomitant]
     Route: 048
     Dates: start: 2008
  4. QUETIAPINE [Suspect]
     Indication: BIPOLAR DISORDER
     Dosage: 3 TABLETS OF 50 MG AND 1 TABLET OF 200 MG, ONCE DAILY
     Route: 048
     Dates: start: 2008
  5. LITHIUMCARBONAAT [Concomitant]
     Route: 048
     Dates: start: 2006
  6. CHLOORTALIDON [Concomitant]
     Route: 048
     Dates: start: 2012, end: 201306
  7. OXAZEPAM [Concomitant]
     Route: 048
     Dates: start: 2006

REACTIONS (1)
  - Type 2 diabetes mellitus [Not Recovered/Not Resolved]
